FAERS Safety Report 9116857 (Version 1)
Quarter: 2013Q1

REPORT INFORMATION
  Report Type: Spontaneous
  Country: CL (occurrence: CL)
  Receive Date: 20130225
  Receipt Date: 20130225
  Transmission Date: 20140127
  Serious: Yes (Hospitalization)
  Sender: FDA-Public Use
  Company Number: PHHY2013CL017725

PATIENT
  Sex: Male

DRUGS (1)
  1. LEPONEX / CLOZARIL [Suspect]
     Dosage: 25 MG
     Dates: start: 20090125

REACTIONS (2)
  - Metabolic disorder [Unknown]
  - Hyperglycaemia [Unknown]
